FAERS Safety Report 5928784-1 (Version None)
Quarter: 2008Q4

REPORT INFORMATION
  Report Type: 
  Country: None (occurrence: None)
  Receive Date: 20081021
  Receipt Date: 20081006
  Transmission Date: 20090506
  Serious: Yes (Other)
  Sender: FDA-Public Use
  Company Number: DSU-2008-01641

PATIENT
  Age: 42 Year
  Sex: Female

DRUGS (1)
  1. OLMESARTAN MEDOXOMIL AND HYDROCHLOROTHIZIDE [Suspect]
     Indication: HYPERTENSION
     Dosage: 40/25 MG (QD) PER ORAL
     Route: 048
     Dates: start: 20080901

REACTIONS (1)
  - BLOOD PRESSURE INCREASED [None]
